FAERS Safety Report 24128016 (Version 1)
Quarter: 2024Q3

REPORT INFORMATION
  Report Type: Spontaneous
  Country: US (occurrence: None)
  Receive Date: 20240722
  Receipt Date: 20240722
  Transmission Date: 20241016
  Serious: Yes (Other)
  Sender: Public
  Company Number: None

PATIENT
  Age: 84 Year
  Sex: Female

DRUGS (3)
  1. IZERVAY [Suspect]
     Active Substance: AVACINCAPTAD PEGOL SODIUM
     Indication: Dry age-related macular degeneration
     Dates: start: 20240619, end: 20240619
  2. TIMOLOL [Suspect]
     Active Substance: TIMOLOL
  3. EyleaHD [Concomitant]

REACTIONS (12)
  - Blindness transient [None]
  - Intraocular pressure increased [None]
  - Feeling abnormal [None]
  - Blood pressure decreased [None]
  - Circumstance or information capable of leading to medication error [None]
  - Confusional state [None]
  - Somnolence [None]
  - Grip strength decreased [None]
  - Blood pressure systolic increased [None]
  - Visual acuity reduced [None]
  - Oculocardiac reflex [None]
  - Drug level increased [None]

NARRATIVE: CASE EVENT DATE: 20240619
